FAERS Safety Report 21024463 (Version 2)
Quarter: 2022Q3

REPORT INFORMATION
  Report Type: Spontaneous
  Country: US (occurrence: US)
  Receive Date: 20220629
  Receipt Date: 20220812
  Transmission Date: 20221026
  Serious: Yes (Life-Threatening, Other)
  Sender: FDA-Public Use
  Company Number: US-MYLANLABS-2022M1048133

PATIENT
  Sex: Male

DRUGS (1)
  1. EPINEPHRINE [Suspect]
     Active Substance: EPINEPHRINE
     Indication: Hypersensitivity
     Dosage: UNK
     Route: 065

REACTIONS (2)
  - Device failure [Unknown]
  - Product dose omission issue [Unknown]
